FAERS Safety Report 9011036 (Version 1)
Quarter: 2013Q1

REPORT INFORMATION
  Report Type: Spontaneous
  Country: US (occurrence: US)
  Receive Date: 20130109
  Receipt Date: 20130109
  Transmission Date: 20140127
  Serious: Yes (Hospitalization)
  Sender: FDA-Public Use
  Company Number: US-GLAXOSMITHKLINE-A0818288A

PATIENT
  Age: 43 Year
  Sex: Male

DRUGS (3)
  1. AVANDIA [Suspect]
     Indication: DIABETES MELLITUS
     Dosage: 4MG TWICE PER DAY
     Route: 048
  2. AVANDARYL [Suspect]
     Route: 048
  3. AVANDAMET [Suspect]
     Indication: DIABETES MELLITUS
     Route: 048

REACTIONS (8)
  - Hypertension [Not Recovered/Not Resolved]
  - Cardiac failure congestive [Unknown]
  - Macular oedema [Unknown]
  - Hepatic failure [Unknown]
  - Cardiac disorder [Unknown]
  - Bone pain [Unknown]
  - Renal disorder [Unknown]
  - Respiratory disorder [Unknown]
